FAERS Safety Report 4567778-8 (Version None)
Quarter: 2005Q1

REPORT INFORMATION
  Report Type: 
  Country: None (occurrence: None)
  Receive Date: 20050125
  Receipt Date: 20050125
  Transmission Date: 20050727
  Serious: Yes (Hospitalization, Disabling)
  Sender: FDA-Public Use
  Company Number: None

PATIENT
  Age: 38 Year
  Sex: Female
  Weight: 72.5755 kg

DRUGS (2)
  1. TRAZODONE HCL [Suspect]
     Indication: DEPRESSION
     Dosage: 50 MG DAILY
     Dates: start: 19990915, end: 19990730
  2. RISPERDAL [Suspect]
     Indication: INSOMNIA
     Dosage: 1 MG EVENINGS
     Dates: start: 19990730, end: 20020930

REACTIONS (3)
  - INSOMNIA [None]
  - NIGHT CRAMPS [None]
  - OVERDOSE [None]
